FAERS Safety Report 19470933 (Version 4)
Quarter: 2021Q3

REPORT INFORMATION
  Report Type: Report from Study
  Country: CA (occurrence: CA)
  Receive Date: 20210628
  Receipt Date: 20210907
  Transmission Date: 20211014
  Serious: Yes (Other)
  Sender: FDA-Public Use
  Company Number: CA-JNJFOC-20210641198

PATIENT
  Age: 28 Year
  Sex: Female

DRUGS (6)
  1. SELEXIPAG [Suspect]
     Active Substance: SELEXIPAG
     Indication: PULMONARY HYPERTENSION
     Route: 048
     Dates: start: 20210524
  2. ADCIRCA [Concomitant]
     Active Substance: TADALAFIL
  3. SELEXIPAG [Suspect]
     Active Substance: SELEXIPAG
     Route: 048
  4. MACITENTAN [Suspect]
     Active Substance: MACITENTAN
     Indication: PRODUCT USED FOR UNKNOWN INDICATION
     Route: 048
  5. BISOPROLOL [Concomitant]
     Active Substance: BISOPROLOL
  6. ASA [Concomitant]
     Active Substance: ASPIRIN

REACTIONS (6)
  - Muscle spasms [Recovering/Resolving]
  - Headache [Recovering/Resolving]
  - Arthralgia [Recovering/Resolving]
  - Tongue ulceration [Recovering/Resolving]
  - Diarrhoea [Recovering/Resolving]
  - Increased appetite [Recovering/Resolving]

NARRATIVE: CASE EVENT DATE: 202108
